FAERS Safety Report 9877266 (Version 1)
Quarter: 2014Q1

REPORT INFORMATION
  Report Type: Spontaneous
  Country: US (occurrence: US)
  Receive Date: 20140206
  Receipt Date: 20140206
  Transmission Date: 20141002
  Serious: Yes (Life-Threatening, Hospitalization, Disabling, Other)
  Sender: FDA-Public Use
  Company Number: US-ELI_LILLY_AND_COMPANY-US201401011902

PATIENT
  Sex: Female

DRUGS (5)
  1. HUMALOG LISPRO [Suspect]
     Indication: TYPE 1 DIABETES MELLITUS
     Dosage: UNK UNK, PRN
     Route: 065
  2. FLU [Concomitant]
     Dosage: UNK
     Dates: start: 2003
  3. CELLCEPT                           /01275102/ [Concomitant]
  4. PROGRAF [Concomitant]
  5. FLUCONAZOLE [Concomitant]

REACTIONS (14)
  - Pulmonary embolism [Recovered/Resolved]
  - Respiratory arrest [Recovered/Resolved]
  - Renal failure [Unknown]
  - Paralysis [Recovered/Resolved with Sequelae]
  - Foot fracture [Unknown]
  - Eye disorder [Unknown]
  - Thrombosis [Not Recovered/Not Resolved]
  - Guillain-Barre syndrome [Unknown]
  - Asthenia [Not Recovered/Not Resolved]
  - Balance disorder [Not Recovered/Not Resolved]
  - Fall [Unknown]
  - Bone disorder [Not Recovered/Not Resolved]
  - Cataract [Unknown]
  - Underdose [Unknown]
